FAERS Safety Report 17946781 (Version 1)
Quarter: 2020Q2

REPORT INFORMATION
  Report Type: Spontaneous
  Country: AU (occurrence: AU)
  Receive Date: 20200626
  Receipt Date: 20200626
  Transmission Date: 20200714
  Serious: Yes (Other)
  Sender: FDA-Public Use
  Company Number: AU-ALKEM LABORATORIES LIMITED-AU-ALKEM-2020-03032

PATIENT
  Age: 58 Year
  Sex: Male

DRUGS (7)
  1. RISPERIDONE. [Suspect]
     Active Substance: RISPERIDONE
     Indication: PRODUCT USED FOR UNKNOWN INDICATION
     Route: 065
  2. QUETIAPINE FUMARATE. [Suspect]
     Active Substance: QUETIAPINE FUMARATE
     Indication: PRODUCT USED FOR UNKNOWN INDICATION
     Dosage: UNK
     Route: 065
  3. OLANZAPINE. [Suspect]
     Active Substance: OLANZAPINE
     Indication: PRODUCT USED FOR UNKNOWN INDICATION
     Dosage: UNK
     Route: 065
  4. CLOZARIL [Suspect]
     Active Substance: CLOZAPINE
     Indication: PRODUCT USED FOR UNKNOWN INDICATION
     Dosage: UNK
     Route: 065
  5. ABILIFY [Concomitant]
     Active Substance: ARIPIPRAZOLE
     Indication: PRODUCT USED FOR UNKNOWN INDICATION
     Dosage: UNK
     Route: 065
  6. CLOPIXOL [Suspect]
     Active Substance: ZUCLOPENTHIXOL
     Indication: PRODUCT USED FOR UNKNOWN INDICATION
     Dosage: UNK
     Route: 065
  7. SOLIAN [Concomitant]
     Active Substance: AMISULPRIDE
     Indication: PRODUCT USED FOR UNKNOWN INDICATION
     Dosage: UNK
     Route: 065

REACTIONS (22)
  - Blood alkaline phosphatase increased [Unknown]
  - Parkinsonian rest tremor [Unknown]
  - Escherichia infection [Unknown]
  - Schizophrenia [Unknown]
  - Eosinophil count increased [Unknown]
  - Muscle rigidity [Unknown]
  - Supraventricular tachycardia [Unknown]
  - High density lipoprotein decreased [Unknown]
  - Left ventricular hypertrophy [Unknown]
  - Cerebral atrophy [Unknown]
  - Blood triglycerides increased [Unknown]
  - Total cholesterol/HDL ratio increased [Unknown]
  - Tricuspid valve incompetence [Unknown]
  - Blood cholesterol decreased [Unknown]
  - Extrapyramidal disorder [Unknown]
  - Hypertension [Unknown]
  - Slow speech [Unknown]
  - Conduction disorder [Unknown]
  - Platelet count decreased [Unknown]
  - Renal disorder [Unknown]
  - Mitral valve incompetence [Unknown]
  - Lymphocyte count decreased [Unknown]
